FAERS Safety Report 6651612-6 (Version None)
Quarter: 2010Q1

REPORT INFORMATION
  Report Type: 
  Country: None (occurrence: None)
  Receive Date: 20100325
  Receipt Date: 20100315
  Transmission Date: 20100710
  Serious: Yes (Hospitalization)
  Sender: FDA-Public Use
  Company Number: BE-ELI_LILLY_AND_COMPANY-BE200610001705

PATIENT
  Sex: Female
  Weight: 50.6 kg

DRUGS (13)
  1. GEMCITABINE HCL [Suspect]
     Indication: NON-SMALL CELL LUNG CANCER
     Dosage: ON D1 AND D8 OF CYCLES 1 TO 3
     Route: 042
     Dates: start: 20060706
  2. GEMCITABINE HCL [Suspect]
     Dosage: 300 MG/M2, ON DAY 1 AND 8 OF CYCLES 4 AND 5
     Route: 042
     Dates: start: 20060907, end: 20060928
  3. CISPLATIN [Suspect]
     Indication: NON-SMALL CELL LUNG CANCER
     Dosage: ON D1 OF EVERY CYCLE
     Route: 042
     Dates: start: 20060706
  4. RADIATION [Suspect]
     Indication: NON-SMALL CELL LUNG CANCER
     Dosage: TOTAL: 63 GY GIVEN IN 35 FRACTIONS IN 7 WEEK
     Dates: start: 20060907
  5. CARDIOASPIRINE [Concomitant]
     Indication: HYPERTENSION
     Dosage: 100 MG, DAILY (1/D)
     Route: 048
     Dates: start: 20061004
  6. RANITIDINE [Concomitant]
     Indication: DYSPHAGIA
     Dosage: 300 MG, DAILY (1/D)
     Route: 048
     Dates: start: 20061004
  7. ZOLPIDEM [Concomitant]
     Indication: INSOMNIA
     Dosage: 10 MG, DAILY (1/D)
     Route: 048
     Dates: start: 20061004
  8. ROCEPHIN [Concomitant]
     Indication: PYREXIA
     Dosage: 2 G, UNKNOWN
     Route: 042
     Dates: start: 20061010, end: 20061018
  9. MOVICOL [Concomitant]
     Indication: CONSTIPATION
     Dosage: 1 UNK, DAILY (1/D)
     Route: 048
     Dates: start: 20061001
  10. LAXOBERON [Concomitant]
     Indication: CONSTIPATION
     Dosage: 105 MG, UNKNOWN
     Route: 048
     Dates: start: 20061001
  11. INDOCIN [Concomitant]
     Indication: ODYNOPHAGIA
     Dosage: 100 MG, UNKNOWN
     Route: 054
     Dates: start: 20061001
  12. MS DIRECT [Concomitant]
     Indication: MUSCULOSKELETAL PAIN
     Dosage: 10 MG, AS NEEDED
     Route: 048
     Dates: start: 20060928
  13. DURAGESIC-100 [Concomitant]
     Indication: MUSCULOSKELETAL PAIN
     Dosage: 25 UG, UNKNOWN
     Route: 062

REACTIONS (5)
  - ASTHENIA [None]
  - DEPRESSED MOOD [None]
  - DYSPHAGIA [None]
  - OESOPHAGITIS [None]
  - VOMITING [None]
